FAERS Safety Report 7227028-0 (Version None)
Quarter: 2011Q1

REPORT INFORMATION
  Report Type: 
  Country: None (occurrence: None)
  Receive Date: 20110111
  Receipt Date: 20110111
  Transmission Date: 20110831
  Serious: Yes (Life-Threatening)
  Sender: FDA-Public Use
  Company Number: None

PATIENT
  Age: 73 Year
  Sex: Female
  Weight: 65.7716 kg

DRUGS (1)
  1. LISINOPRIL [Suspect]
     Dosage: 1 PILL A DAY ONCE A DAY NEW PILL
     Dates: start: 20090701

REACTIONS (4)
  - SKIN DISCOLOURATION [None]
  - FEELING ABNORMAL [None]
  - DECREASED ACTIVITY [None]
  - MALAISE [None]
